FAERS Safety Report 4983037-3 (Version None)
Quarter: 2006Q2

REPORT INFORMATION
  Report Type: 
  Country: None (occurrence: None)
  Receive Date: 20060419
  Receipt Date: 20060407
  Transmission Date: 20061013
  Serious: Yes (Disabling)
  Sender: FDA-Public Use
  Company Number: 223901

PATIENT
  Sex: Male

DRUGS (1)
  1. RAPTIVA [Suspect]
     Indication: PSORIASIS
     Dosage: 0.14 MG/KG, 1/WEEK, SUBCUTANEOUS
     Route: 058
     Dates: start: 20041207

REACTIONS (3)
  - CEREBROVASCULAR ACCIDENT [None]
  - POLYCYTHAEMIA [None]
  - VISUAL ACUITY REDUCED [None]
